FAERS Safety Report 4297135-3 (Version None)
Quarter: 2004Q1

REPORT INFORMATION
  Report Type: 
  Country: None (occurrence: None)
  Receive Date: 20040213
  Receipt Date: 20040204
  Transmission Date: 20041129
  Serious: Yes (Other)
  Sender: FDA-Public Use
  Company Number: 2004197829GB

PATIENT
  Age: 20 Year
  Sex: Female
  Weight: 55 kg

DRUGS (1)
  1. DEPO-PROVERA [Suspect]
     Indication: CONTRACEPTION
     Dosage: FIRST INJECT., INTRAMUSCULAR
     Route: 030
     Dates: start: 20010801, end: 20010801

REACTIONS (2)
  - INJECTION SITE ATROPHY [None]
  - MUSCLE ATROPHY [None]
